FAERS Safety Report 10717297 (Version 7)
Quarter: 2016Q3

REPORT INFORMATION
  Report Type: Spontaneous
  Country: DK (occurrence: DK)
  Receive Date: 20150116
  Receipt Date: 20160816
  Transmission Date: 20161109
  Serious: Yes (Hospitalization, Other)
  Sender: FDA-Public Use
  Company Number: DK-PFIZER INC-2015014184

PATIENT
  Age: 42 Year
  Sex: Female

DRUGS (23)
  1. NORITREN [Suspect]
     Active Substance: NORTRIPTYLINE HYDROCHLORIDE
     Indication: BACK PAIN
     Dosage: 10 MG, 2X/DAY
     Dates: start: 20121206, end: 20130111
  2. TRADOLAN [Concomitant]
     Active Substance: TRAMADOL
     Indication: BACK PAIN
     Dosage: 100 MG, 2X/DAY
     Dates: start: 20120922
  3. AMITRIPTYLINE ^DAK^ [Suspect]
     Active Substance: AMITRIPTYLINE
     Indication: PAIN
     Dosage: 10 MG, 1X/DAY
     Dates: start: 20120323
  4. METHADONE [Concomitant]
     Active Substance: METHADONE HYDROCHLORIDE
     Indication: BACK PAIN
     Dosage: 1 MG, 3X/DAY
     Dates: start: 20120826, end: 20120904
  5. METHADONE [Concomitant]
     Active Substance: METHADONE HYDROCHLORIDE
     Indication: FIBROMYALGIA
  6. NORITREN [Suspect]
     Active Substance: NORTRIPTYLINE HYDROCHLORIDE
     Indication: PAIN
     Dosage: 10 MG, 2X/DAY, MORNING AND EVENING
     Dates: start: 20120621, end: 20120623
  7. AMITRIPTYLINE ^DAK^ [Suspect]
     Active Substance: AMITRIPTYLINE
     Dosage: UNK, REDUCED DOSE
     Dates: start: 20120613, end: 20120616
  8. IBUPROFEN. [Concomitant]
     Active Substance: IBUPROFEN
     Indication: PAIN
     Dosage: 600 MG, 2X/DAY
     Dates: end: 201204
  9. LYRICA [Suspect]
     Active Substance: PREGABALIN
     Dosage: 75 MG, 2X/DAY
     Dates: start: 20121225, end: 20121227
  10. NORITREN [Suspect]
     Active Substance: NORTRIPTYLINE HYDROCHLORIDE
     Indication: FIBROMYALGIA
     Dosage: 20 MG, 2X/DAY
     Dates: start: 20120624
  11. AMITRIPTYLINE ^DAK^ [Suspect]
     Active Substance: AMITRIPTYLINE
     Dosage: 30 MG, 1X/DAY
     Dates: start: 20120617, end: 20130111
  12. KODIMAGNYL /00186401/ [Concomitant]
     Indication: FIBROMYALGIA
  13. LYRICA [Suspect]
     Active Substance: PREGABALIN
     Indication: PAIN
     Dosage: 75 MG, 2X/DAY
     Dates: end: 20120812
  14. LYRICA [Suspect]
     Active Substance: PREGABALIN
     Dosage: UNK, REDUCED DOSE
     Dates: start: 20121031, end: 20121224
  15. AMITRIPTYLINE ^DAK^ [Suspect]
     Active Substance: AMITRIPTYLINE
     Dosage: 50 MG, 1X/DAY
     Dates: start: 20120508, end: 20120613
  16. DICLOFENAC [Concomitant]
     Active Substance: DICLOFENAC
     Indication: PAIN
     Dosage: 50 MG, 2X/DAY
     Dates: end: 201204
  17. KODIMAGNYL /00186401/ [Concomitant]
     Indication: PAIN
     Dosage: 2 G, DAILY
     Dates: end: 20120628
  18. DOLOL /00599201/ [Concomitant]
     Active Substance: TRAMADOL
     Indication: FIBROMYALGIA
  19. CYMBALTA [Concomitant]
     Active Substance: DULOXETINE HYDROCHLORIDE
     Indication: FIBROMYALGIA
     Dosage: 30 MG, 1X/DAY
     Dates: start: 20130103, end: 20130111
  20. LYRICA [Suspect]
     Active Substance: PREGABALIN
     Indication: FIBROMYALGIA
     Dosage: UNK, DOSE INCREASED
     Dates: start: 20120813, end: 20120919
  21. LYRICA [Suspect]
     Active Substance: PREGABALIN
     Indication: BACK PAIN
     Dosage: 200 MG, 3X/DAY
     Dates: start: 20120920, end: 20121031
  22. TRADOLAN [Concomitant]
     Active Substance: TRAMADOL
     Indication: FIBROMYALGIA
  23. DOLOL /00599201/ [Concomitant]
     Active Substance: TRAMADOL
     Indication: BACK PAIN
     Dosage: 50 MG, 3X/DAY
     Dates: start: 2009

REACTIONS (13)
  - Chest pain [Recovered/Resolved]
  - Mental disorder [Unknown]
  - Cardiac disorder [Recovered/Resolved]
  - Asthenia [Unknown]
  - Drug ineffective [Unknown]
  - Cardiac failure [Not Recovered/Not Resolved]
  - Ventricular extrasystoles [Unknown]
  - Palpitations [Unknown]
  - Dyspnoea [Unknown]
  - Supraventricular tachyarrhythmia [Recovered/Resolved]
  - Cardiomyopathy [Recovered/Resolved]
  - Blood pressure increased [Unknown]
  - Fatigue [Unknown]

NARRATIVE: CASE EVENT DATE: 2012
